FAERS Safety Report 18290310 (Version 1)
Quarter: 2020Q3

REPORT INFORMATION
  Report Type: Report from Study
  Country: US (occurrence: US)
  Receive Date: 20200921
  Receipt Date: 20200921
  Transmission Date: 20201103
  Serious: Yes (Hospitalization)
  Sender: FDA-Public Use
  Company Number: US-JNJFOC-20200922189

PATIENT
  Age: 18 Year
  Sex: Female

DRUGS (36)
  1. STELARA [Suspect]
     Active Substance: USTEKINUMAB
  2. CREATINE [Concomitant]
     Active Substance: CREATINE
     Route: 065
  3. PREDNISONE. [Concomitant]
     Active Substance: PREDNISONE
     Route: 065
  4. CYPROHEPTADINE. [Concomitant]
     Active Substance: CYPROHEPTADINE
     Route: 065
  5. ZYRTEC [Concomitant]
     Active Substance: CETIRIZINE HYDROCHLORIDE
     Route: 065
  6. COENZYME Q10 [Concomitant]
     Active Substance: DIETARY SUPPLEMENT\UBIDECARENONE
     Route: 065
  7. OMEPRAZOLE. [Concomitant]
     Active Substance: OMEPRAZOLE
     Route: 065
  8. TOBRAMYCIN. [Concomitant]
     Active Substance: TOBRAMYCIN
     Route: 065
  9. PULMICORT TURBUHALER [Concomitant]
     Active Substance: BUDESONIDE
     Route: 065
  10. STELARA [Suspect]
     Active Substance: USTEKINUMAB
     Indication: PRODUCT USED FOR UNKNOWN INDICATION
     Route: 058
     Dates: start: 20150821
  11. HYDROCORTISONE. [Concomitant]
     Active Substance: HYDROCORTISONE
     Route: 065
  12. CALCIUM W/COLECALCIFEROL [Concomitant]
     Active Substance: CALCIUM\CHOLECALCIFEROL
     Route: 065
  13. PULMOZYME [Concomitant]
     Active Substance: DORNASE ALFA
     Route: 065
  14. LEVOCARNITINE. [Concomitant]
     Active Substance: LEVOCARNITINE
     Route: 065
  15. SODIUM CHLORIDE. [Concomitant]
     Active Substance: SODIUM CHLORIDE
     Route: 065
  16. GAMMAGARD [Concomitant]
     Active Substance: HUMAN IMMUNOGLOBULIN G
     Route: 065
  17. NORDITROPIN [Concomitant]
     Active Substance: SOMATROPIN
     Route: 065
  18. HYDROCHLOROTHIAZIDE. [Concomitant]
     Active Substance: HYDROCHLOROTHIAZIDE
     Route: 065
  19. NIFEDIPINE. [Concomitant]
     Active Substance: NIFEDIPINE
     Route: 065
  20. BUDESONIDE. [Concomitant]
     Active Substance: BUDESONIDE
     Route: 065
  21. OFLOXACIN. [Concomitant]
     Active Substance: OFLOXACIN
     Route: 065
  22. ALPHA LIPOIC ACID [Concomitant]
     Active Substance: .ALPHA.-LIPOIC ACID
     Route: 065
  23. ZANTAC [Concomitant]
     Active Substance: RANITIDINE HYDROCHLORIDE
     Route: 065
  24. METFORMIN [Concomitant]
     Active Substance: METFORMIN HYDROCHLORIDE
     Route: 065
  25. STELARA [Concomitant]
     Active Substance: USTEKINUMAB
     Route: 065
  26. SIROLIMUS. [Concomitant]
     Active Substance: SIROLIMUS
     Route: 065
  27. SWEEN [Concomitant]
     Route: 065
  28. FLONASE [Concomitant]
     Active Substance: FLUTICASONE PROPIONATE
     Route: 065
  29. PROCARDIA [Concomitant]
     Active Substance: NIFEDIPINE
     Route: 065
  30. PRILOSEC [Concomitant]
     Active Substance: OMEPRAZOLE MAGNESIUM
     Route: 065
  31. VITAMIN B COMPLEX                  /00302401/ [Concomitant]
     Route: 065
  32. FOSAMAX [Concomitant]
     Active Substance: ALENDRONATE SODIUM
     Route: 065
  33. ORENCIA [Concomitant]
     Active Substance: ABATACEPT
     Route: 065
  34. CALCITROL                          /00514701/ [Concomitant]
     Route: 065
  35. NYSTATIN. [Concomitant]
     Active Substance: NYSTATIN
     Route: 065
  36. ALBUTEROL                          /00139501/ [Concomitant]
     Active Substance: ALBUTEROL
     Route: 065

REACTIONS (3)
  - Sialoadenitis [Not Recovered/Not Resolved]
  - Salivary gland calculus [Unknown]
  - Biopsy lung [Unknown]
